FAERS Safety Report 13563678 (Version 1)
Quarter: 2017Q2

REPORT INFORMATION
  Report Type: Spontaneous
  Country: JP (occurrence: JP)
  Receive Date: 20170519
  Receipt Date: 20170519
  Transmission Date: 20170830
  Serious: Yes (Other)
  Sender: FDA-Public Use
  Company Number: JP-009507513-1704JPN002212J

PATIENT
  Age: 78 Year
  Sex: Male
  Weight: 45 kg

DRUGS (24)
  1. CANCIDAS [Suspect]
     Active Substance: CASPOFUNGIN ACETATE
     Indication: BRONCHOPULMONARY ASPERGILLOSIS
     Dosage: 70 MG, QD
     Route: 041
     Dates: start: 20170116, end: 20170116
  2. VORICONAZOLE. [Concomitant]
     Active Substance: VORICONAZOLE
     Indication: BRONCHOPULMONARY ASPERGILLOSIS
     Dosage: 400 MG, UNK
     Route: 041
     Dates: start: 20170105, end: 20170116
  3. CEFEPIME HYDROCHLORIDE. [Concomitant]
     Active Substance: CEFEPIME HYDROCHLORIDE
     Indication: PNEUMONIA
     Dosage: 1 G, TID
     Route: 051
     Dates: start: 20170210, end: 20170214
  4. ALBUMIN TANNATE [Concomitant]
     Active Substance: ALBUMIN BOVINE\TANNIC ACID
     Indication: DIARRHOEA
     Dosage: 1 G, TID
     Route: 048
     Dates: start: 20170108, end: 20170130
  5. ZOSYN [Suspect]
     Active Substance: PIPERACILLIN SODIUM\TAZOBACTAM SODIUM
     Indication: SEPSIS
     Dosage: 4.5 G, TID
     Route: 051
     Dates: start: 20170120, end: 20170126
  6. PREDONINE [Concomitant]
     Active Substance: PREDNISOLONE
     Dosage: 15 MG, QD
     Route: 051
     Dates: start: 20170205, end: 20170211
  7. ROZEREM [Concomitant]
     Active Substance: RAMELTEON
     Indication: DELIRIUM
     Dosage: 8 MG, QD
     Route: 048
     Dates: start: 20170110, end: 20170205
  8. SAMTIREL [Suspect]
     Active Substance: ATOVAQUONE
     Indication: PROPHYLAXIS
     Dosage: 5 MG, BID
     Route: 048
     Dates: start: 20170104
  9. PREDONINE [Concomitant]
     Active Substance: PREDNISOLONE
     Dosage: 20 MG, QD
     Route: 051
     Dates: start: 20170129, end: 20170204
  10. PREDONINE [Concomitant]
     Active Substance: PREDNISOLONE
     Indication: INTERSTITIAL LUNG DISEASE
     Dosage: 30 MG, QD
     Route: 051
     Dates: start: 20170115, end: 20170121
  11. NOVOLIN R [Concomitant]
     Active Substance: INSULIN HUMAN
     Indication: DIABETES MELLITUS
     Dosage: 25 IU, QD
     Route: 051
     Dates: start: 20170110
  12. URIEF [Concomitant]
     Active Substance: SILODOSIN
     Indication: BENIGN PROSTATIC HYPERPLASIA
     Dosage: 4 MG, BID
     Route: 048
     Dates: start: 20170112
  13. FLUNITRAZEPAM [Concomitant]
     Active Substance: FLUNITRAZEPAM
     Indication: INSOMNIA
     Dosage: 1 MG, QD
     Route: 048
     Dates: start: 20170105, end: 20170205
  14. HANGE-SHASHIN-TO [Concomitant]
     Active Substance: HERBALS
     Indication: DIARRHOEA
     Dosage: 2.5 G, TID
     Route: 048
     Dates: start: 20161222
  15. PREDONINE [Concomitant]
     Active Substance: PREDNISOLONE
     Dosage: 25 MG, QD
     Route: 051
     Dates: start: 20170122, end: 20170128
  16. ASVERIN (TIPEPIDINE HIBENZATE) [Concomitant]
     Active Substance: TIPEPIDINE HIBENZATE
     Indication: BRONCHITIS
     Dosage: 20 MG, TID
     Route: 048
     Dates: start: 20170119
  17. RISPERDAL [Concomitant]
     Active Substance: RISPERIDONE
     Indication: DELIRIUM
     Dosage: 2 MG, QD
     Route: 048
     Dates: start: 20161227, end: 20170205
  18. ADSORBIN [Concomitant]
     Active Substance: ALUMINUM SILICATE
     Indication: DIARRHOEA
     Dosage: 1 G, TID
     Route: 048
     Dates: start: 20170108, end: 20170130
  19. VANCOMYCIN HYDROCHLORIDE. [Concomitant]
     Active Substance: VANCOMYCIN HYDROCHLORIDE
     Indication: GASTROENTERITIS CLOSTRIDIAL
     Dosage: 0.5 G, QID
     Route: 048
     Dates: start: 20170120, end: 20170202
  20. TALION [Concomitant]
     Active Substance: BEPOTASTINE
     Indication: RHINITIS ALLERGIC
     Dosage: 10 MG, BID
     Route: 048
     Dates: start: 20161201
  21. LANSOPRAZOLE. [Concomitant]
     Active Substance: LANSOPRAZOLE
     Indication: PROPHYLAXIS AGAINST GASTROINTESTINAL ULCER
     Dosage: 15 MG, QD
     Route: 048
     Dates: start: 20161226
  22. CANCIDAS [Suspect]
     Active Substance: CASPOFUNGIN ACETATE
     Indication: BRONCHOPULMONARY ASPERGILLOSIS
     Dosage: 50 MG, QD
     Route: 041
     Dates: start: 20170117, end: 20170216
  23. VANCOMYCIN [Concomitant]
     Active Substance: VANCOMYCIN
     Indication: PNEUMONIA
     Dosage: 750 MG, BID
     Route: 051
     Dates: start: 20170210, end: 20170223
  24. TRAZODONE HYDROCHLORIDE. [Concomitant]
     Active Substance: TRAZODONE HYDROCHLORIDE
     Indication: DELIRIUM
     Dosage: 25 MG, QD
     Route: 048
     Dates: start: 20170112, end: 20170205

REACTIONS (10)
  - Gastroenteritis clostridial [Recovered/Resolved]
  - C-reactive protein increased [Recovering/Resolving]
  - Blood lactate dehydrogenase increased [Recovering/Resolving]
  - Pyrexia [Recovering/Resolving]
  - Pneumonia [Recovered/Resolved]
  - Bronchitis [Recovering/Resolving]
  - White blood cell count increased [Not Recovered/Not Resolved]
  - Sepsis [Recovered/Resolved]
  - Gamma-glutamyltransferase increased [Recovering/Resolving]
  - Blood alkaline phosphatase increased [Not Recovered/Not Resolved]

NARRATIVE: CASE EVENT DATE: 20170117
